FAERS Safety Report 12996150 (Version 1)
Quarter: 2016Q4

REPORT INFORMATION
  Report Type: Spontaneous
  Country: DK (occurrence: DK)
  Receive Date: 20161203
  Receipt Date: 20161203
  Transmission Date: 20170207
  Serious: Yes (Life-Threatening, Hospitalization)
  Sender: FDA-Public Use
  Company Number: DK-ASTRAZENECA-2016SF25613

PATIENT
  Age: 22538 Day
  Sex: Male

DRUGS (13)
  1. ATORVASTATIN [Concomitant]
     Active Substance: ATORVASTATIN
     Indication: PRODUCT USED FOR UNKNOWN INDICATION
     Dates: end: 20161114
  2. GIONA EASYHALER [Concomitant]
     Indication: CHRONIC OBSTRUCTIVE PULMONARY DISEASE
     Dosage: AS NEEDED
     Dates: end: 20161114
  3. SAPIMOL [Concomitant]
     Indication: CHRONIC OBSTRUCTIVE PULMONARY DISEASE
     Dates: end: 20161114
  4. TRANDOLAPRIL. [Concomitant]
     Active Substance: TRANDOLAPRIL
     Indication: CARDIAC FAILURE
     Dates: end: 20161114
  5. ULTIBRO BREEZHALER [Concomitant]
     Active Substance: GLYCOPYRRONIUM\INDACATEROL
     Indication: CHRONIC OBSTRUCTIVE PULMONARY DISEASE
     Dosage: 85 + 43 MIKROGRAM, 1 DF DAILY
     Dates: end: 20161114
  6. MOXALOLE [Concomitant]
     Indication: CONSTIPATION
     Dates: end: 20161114
  7. PARACETAMOL [Concomitant]
     Active Substance: ACETAMINOPHEN
     Indication: PAIN
     Dates: end: 20161114
  8. BRILIQUE [Suspect]
     Active Substance: TICAGRELOR
     Indication: ACUTE CORONARY SYNDROME
     Route: 048
     Dates: start: 20160126, end: 20161114
  9. BUVENTOL EASYHALER [Concomitant]
     Active Substance: ALBUTEROL SULFATE
     Indication: CHRONIC OBSTRUCTIVE PULMONARY DISEASE
     Dosage: AS NEEDED
     Dates: end: 20161114
  10. KLOPOXID ^TAKEDA^ [Concomitant]
     Active Substance: CHLORDIAZEPOXIDE
     Indication: SEDATIVE THERAPY
     Dates: end: 20161114
  11. HJERTEMAGNYL [Suspect]
     Active Substance: ASPIRIN\MAGNESIUM OXIDE
     Indication: ACUTE MYOCARDIAL INFARCTION
     Route: 048
     Dates: start: 20160126, end: 20161114
  12. CARVEDILOL. [Concomitant]
     Active Substance: CARVEDILOL
     Indication: CARDIAC FAILURE
     Dates: end: 20161114
  13. OXAPAX [Concomitant]
     Active Substance: OXAZEPAM
     Indication: SEDATIVE THERAPY
     Dosage: AS NEEDED MAX 3 DAILY
     Dates: end: 20161114

REACTIONS (4)
  - Heart rate decreased [Unknown]
  - Cerebrovascular accident [Not Recovered/Not Resolved]
  - Hypertension [Unknown]
  - Basal ganglia haemorrhage [Unknown]

NARRATIVE: CASE EVENT DATE: 20161114
